FAERS Safety Report 24708737 (Version 1)
Quarter: 2024Q4

REPORT INFORMATION
  Report Type: Spontaneous
  Country: US (occurrence: US)
  Receive Date: 20241207
  Receipt Date: 20241207
  Transmission Date: 20250114
  Serious: No
  Sender: ABBVIE
  Company Number: US-ABBVIE-6033379

PATIENT
  Sex: Female
  Weight: 68 kg

DRUGS (3)
  1. BOTOX COSMETIC [Suspect]
     Active Substance: ONABOTULINUMTOXINA
     Indication: Skin wrinkling
     Dosage: TIME INTERVAL: AS NECESSARY
     Route: 030
     Dates: start: 202311, end: 202311
  2. BOTOX COSMETIC [Suspect]
     Active Substance: ONABOTULINUMTOXINA
     Indication: Skin wrinkling
     Dosage: TIME INTERVAL: AS NECESSARY
     Route: 030
     Dates: start: 20241120, end: 20241120
  3. JUVEDERM [Concomitant]
     Active Substance: HYALURONIC ACID
     Indication: Facial cosmetic procedure
     Dates: start: 202311, end: 202311

REACTIONS (10)
  - Choking sensation [Recovered/Resolved]
  - Hypoaesthesia [Recovering/Resolving]
  - Dysphagia [Recovered/Resolved]
  - Nausea [Recovered/Resolved]
  - Lip swelling [Recovered/Resolved]
  - Drug ineffective [Not Recovered/Not Resolved]
  - Oral discomfort [Not Recovered/Not Resolved]
  - Mouth swelling [Not Recovered/Not Resolved]
  - Retching [Recovered/Resolved]
  - Swelling face [Not Recovered/Not Resolved]

NARRATIVE: CASE EVENT DATE: 20241120
